FAERS Safety Report 6183138-0 (Version None)
Quarter: 2009Q2

REPORT INFORMATION
  Report Type: 
  Country: None (occurrence: None)
  Receive Date: 20090506
  Receipt Date: 20090428
  Transmission Date: 20091009
  Serious: Yes (Other)
  Sender: FDA-Public Use
  Company Number: SPV1-2009-00649

PATIENT
  Age: 9 Year
  Sex: Male

DRUGS (9)
  1. ELAPRASE [Suspect]
     Indication: MUCOPOLYSACCHARIDOSIS II
     Dosage: IV DRIP
     Route: 041
     Dates: start: 20061228
  2. SERETIDE /01420901 / (FLUTICASON E PROPIONATE, SALMETEROL ELAPRASE.XIN [Concomitant]
  3. SALBUTAMOL (SALBUTAMOL) [Concomitant]
  4. AMITRIPTYLINE HYDROCHLORIDE [Concomitant]
  5. IBUPROFEN [Concomitant]
  6. CYAMEMAZINE (CYAMEMAZINE) [Concomitant]
  7. CARBAMAZEPINE [Concomitant]
  8. RISPERDAL [Concomitant]
  9. PARACETAMOL/CODEINEFOSFAAT (CODEINE PHOSPHATE, PARACETAMOL) TABLET [Concomitant]

REACTIONS (3)
  - ASTHMA [None]
  - NASOPHARYNGITIS [None]
  - PNEUMONIA [None]
